FAERS Safety Report 6444662-6 (Version None)
Quarter: 2009Q4

REPORT INFORMATION
  Report Type: 
  Country: None (occurrence: None)
  Receive Date: 20091116
  Receipt Date: 20091116
  Transmission Date: 20100525
  Serious: No
  Sender: FDA-Public Use
  Company Number: None

PATIENT
  Age: 84 Year
  Sex: Male
  Weight: 79.3795 kg

DRUGS (1)
  1. TRILIPIX [Suspect]
     Indication: BLOOD CHOLESTEROL INCREASED
     Dosage: 135 MG DAILY ORAL
     Route: 048
     Dates: start: 20090428, end: 20090707

REACTIONS (2)
  - BACK PAIN [None]
  - PAIN IN EXTREMITY [None]
